FAERS Safety Report 7362253-X (Version None)
Quarter: 2011Q1

REPORT INFORMATION
  Report Type: 
  Country: None (occurrence: None)
  Receive Date: 20110318
  Receipt Date: 20110309
  Transmission Date: 20110831
  Serious: No
  Sender: FDA-Public Use
  Company Number: PHHO2010US16590

PATIENT
  Sex: Male

DRUGS (3)
  1. GILENYA [Suspect]
     Indication: MULTIPLE SCLEROSIS
     Dosage: DOSE BLINDED
     Route: 048
  2. GILENYA [Suspect]
     Dosage: 0.5MG
     Route: 048
     Dates: start: 20100319
  3. INFLUENZA VACCINE [Suspect]

REACTIONS (1)
  - NASOPHARYNGITIS [None]
